FAERS Safety Report 19088894 (Version 2)
Quarter: 2021Q2

REPORT INFORMATION
  Report Type: Spontaneous
  Country: IN (occurrence: IN)
  Receive Date: 20210403
  Receipt Date: 20210519
  Transmission Date: 20210717
  Serious: No
  Sender: FDA-Public Use
  Company Number: IN-LUPIN LIMITED-2021-03849

PATIENT
  Sex: Male

DRUGS (2)
  1. STALOPAM FILM C.TABS 10 MG [Suspect]
     Active Substance: ESCITALOPRAM OXALATE
     Indication: ASTHENIA
  2. STALOPAM FILM C.TABS 10 MG [Suspect]
     Active Substance: ESCITALOPRAM OXALATE
     Indication: PSYCHOTIC DISORDER
     Dosage: UNK, LAST 10 YEARS
     Route: 065

REACTIONS (2)
  - Weight increased [Not Recovered/Not Resolved]
  - Product use in unapproved indication [Unknown]
